FAERS Safety Report 6191313-4 (Version None)
Quarter: 2009Q2

REPORT INFORMATION
  Report Type: 
  Country: None (occurrence: None)
  Receive Date: 20090513
  Receipt Date: 20090513
  Transmission Date: 20091009
  Serious: Yes (Life-Threatening, Hospitalization, Other)
  Sender: FDA-Public Use
  Company Number: None

PATIENT
  Sex: Female
  Weight: 67.586 kg

DRUGS (1)
  1. EFFEXOR [Suspect]
     Indication: HEAD INJURY
     Dosage: 300 MG DAILY BY MOUTH
     Route: 048
     Dates: start: 20081106, end: 20090412

REACTIONS (23)
  - ABASIA [None]
  - ABNORMAL BEHAVIOUR [None]
  - AGGRESSION [None]
  - CONFUSIONAL STATE [None]
  - CRYING [None]
  - DEPRESSION [None]
  - DRY MOUTH [None]
  - FEAR [None]
  - HAEMOPTYSIS [None]
  - HALLUCINATIONS, MIXED [None]
  - HYPERHIDROSIS [None]
  - HYPOAESTHESIA [None]
  - HYPOAESTHESIA FACIAL [None]
  - IMPAIRED DRIVING ABILITY [None]
  - INSOMNIA [None]
  - LOSS OF CONSCIOUSNESS [None]
  - MUSCLE TWITCHING [None]
  - SPEECH DISORDER [None]
  - SUICIDAL IDEATION [None]
  - SUICIDE ATTEMPT [None]
  - TREMOR [None]
  - VISUAL IMPAIRMENT [None]
  - YAWNING [None]
